FAERS Safety Report 11208182 (Version 1)
Quarter: 2015Q2

REPORT INFORMATION
  Report Type: Spontaneous
  Country: US (occurrence: None)
  Receive Date: 20150619
  Receipt Date: 20150619
  Transmission Date: 20150821
  Serious: Yes (Hospitalization)
  Sender: FDA-Public Use
  Company Number: None

PATIENT
  Age: 77 Year
  Sex: Male
  Weight: 89.8 kg

DRUGS (6)
  1. ASA [Suspect]
     Active Substance: ASPIRIN
     Indication: PROPHYLAXIS
     Dosage: CHRONIC DAILY PO
     Route: 048
  2. FLECAINEAMIDE [Concomitant]
  3. DILTIAZEM [Concomitant]
     Active Substance: DILTIAZEM
  4. ZANTAC [Concomitant]
     Active Substance: RANITIDINE HYDROCHLORIDE
  5. XARELTO [Suspect]
     Active Substance: RIVAROXABAN
     Indication: ATRIAL FIBRILLATION
     Dosage: CHRONIC DAILY PO
     Route: 048
  6. VITAMIN C [Concomitant]
     Active Substance: ASCORBIC ACID

REACTIONS (6)
  - International normalised ratio increased [None]
  - Seizure [None]
  - Haemorrhage intracranial [None]
  - Drug ineffective [None]
  - Body temperature increased [None]
  - Drug eruption [None]
